FAERS Safety Report 9306288 (Version 1)
Quarter: 2013Q2

REPORT INFORMATION
  Report Type: Report from Study
  Country: US (occurrence: US)
  Receive Date: 20130523
  Receipt Date: 20130523
  Transmission Date: 20140414
  Serious: Yes (Hospitalization)
  Sender: FDA-Public Use
  Company Number: US-ABBOTT-13P-163-1091340-00

PATIENT
  Age: 27 Year
  Sex: Female
  Weight: 56.75 kg

DRUGS (9)
  1. HUMIRA [Suspect]
     Indication: CROHN^S DISEASE
     Dates: start: 200706, end: 201105
  2. HUMIRA [Suspect]
     Dates: start: 201105, end: 201112
  3. HUMIRA [Suspect]
     Dates: start: 20120109
  4. OMNARIS [Concomitant]
     Indication: PRODUCT USED FOR UNKNOWN INDICATION
  5. SINGULAIR [Concomitant]
     Indication: PRODUCT USED FOR UNKNOWN INDICATION
  6. BUPROPION HCL [Concomitant]
     Indication: PRODUCT USED FOR UNKNOWN INDICATION
  7. ZOLPIDEM [Concomitant]
     Indication: PRODUCT USED FOR UNKNOWN INDICATION
  8. ESCITALOPRAM [Concomitant]
     Indication: PRODUCT USED FOR UNKNOWN INDICATION
  9. ZYRTEC [Concomitant]
     Indication: PRODUCT USED FOR UNKNOWN INDICATION

REACTIONS (9)
  - Ileal stenosis [Recovered/Resolved]
  - Intestinal obstruction [Unknown]
  - Intestinal fistula [Recovered/Resolved]
  - Abdominal pain [Not Recovered/Not Resolved]
  - Ileal stenosis [Recovered/Resolved]
  - Procedural pain [Recovered/Resolved]
  - Crohn^s disease [Unknown]
  - Treatment noncompliance [Unknown]
  - Fistula discharge [Unknown]
